FAERS Safety Report 9953771 (Version 1)
Quarter: 2014Q1

REPORT INFORMATION
  Report Type: Spontaneous
  Country: US (occurrence: US)
  Receive Date: 20140304
  Receipt Date: 20140304
  Transmission Date: 20141002
  Serious: No
  Sender: FDA-Public Use
  Company Number: US-AMGEN-USASP2013076152

PATIENT
  Age: 39 Year
  Sex: Female

DRUGS (3)
  1. ENBREL [Suspect]
     Indication: COLITIS ULCERATIVE
     Dosage: 50 MG, QWK (EVERY WEEK)
     Route: 058
     Dates: start: 201310
  2. ENBREL [Suspect]
     Indication: ANKYLOSING SPONDYLITIS
  3. PREDNISONE [Concomitant]
     Dosage: UNK

REACTIONS (2)
  - Arthralgia [Unknown]
  - Pain in extremity [Unknown]
